FAERS Safety Report 15237932 (Version 2)
Quarter: 2019Q1

REPORT INFORMATION
  Report Type: Report from Study
  Country: CA (occurrence: CA)
  Receive Date: 20180803
  Receipt Date: 20190211
  Transmission Date: 20190417
  Serious: Yes (Other)
  Sender: FDA-Public Use
  Company Number: CA-PFIZER INC-2018308015

PATIENT
  Age: 41 Year
  Sex: Female

DRUGS (1)
  1. SOLU-MEDROL [Suspect]
     Active Substance: METHYLPREDNISOLONE SODIUM SUCCINATE
     Indication: RELAPSING-REMITTING MULTIPLE SCLEROSIS
     Dosage: 1000 MG, SINGLE
     Route: 042

REACTIONS (1)
  - Bronchospasm [Recovered/Resolved]
